FAERS Safety Report 6022613-6 (Version None)
Quarter: 2008Q4

REPORT INFORMATION
  Report Type: 
  Country: None (occurrence: None)
  Receive Date: 20081230
  Receipt Date: 20081224
  Transmission Date: 20090506
  Serious: Yes (Hospitalization)
  Sender: FDA-Public Use
  Company Number: AT-JNJFOC-20081206766

PATIENT
  Age: 78 Year
  Sex: Female

DRUGS (3)
  1. TAVANIC [Suspect]
     Indication: DIARRHOEA
     Route: 048
  2. MYOCHOLINE [Concomitant]
     Route: 048
  3. ASPIRIN [Concomitant]
     Route: 048

REACTIONS (4)
  - ABNORMAL BEHAVIOUR [None]
  - AGGRESSION [None]
  - COGNITIVE DISORDER [None]
  - DISORIENTATION [None]
